FAERS Safety Report 15453558 (Version 1)
Quarter: 2018Q4

REPORT INFORMATION
  Report Type: Spontaneous
  Country: US (occurrence: US)
  Receive Date: 20181001
  Receipt Date: 20181001
  Transmission Date: 20190204
  Serious: Yes (Hospitalization)
  Sender: FDA-Public Use
  Company Number: US-ACTELION-A-NJ2018-179295

PATIENT
  Age: 2 Year
  Sex: Female

DRUGS (12)
  1. BUMEX [Concomitant]
     Active Substance: BUMETANIDE
     Dosage: 0.5 MG, QAM
     Route: 048
  2. TITRALAC [Concomitant]
     Active Substance: CALCIUM CARBONATE
     Dosage: 1.1 ML, TID
     Route: 048
  3. POLY-VI-SOL WITH IRON [Concomitant]
     Active Substance: IRON\VITAMINS
     Dosage: 1 ML, QD
     Route: 048
  4. ZANTAC [Concomitant]
     Active Substance: RANITIDINE HYDROCHLORIDE
     Dosage: 3.4 ML, BID
     Route: 049
  5. ASPIRIN 81 [Concomitant]
     Active Substance: ASPIRIN
     Dosage: 40.5 MG, QAM
     Route: 048
  6. REVATIO [Concomitant]
     Active Substance: SILDENAFIL CITRATE
     Dosage: 1 ML, TID
     Route: 048
  7. DIURIL [Concomitant]
     Active Substance: CHLOROTHIAZIDE
     Dosage: 125 MG, BID
     Route: 048
  8. VITAMIN D3 [Concomitant]
     Active Substance: CHOLECALCIFEROL
     Dosage: 1000 U, QAM
     Route: 048
  9. TRACLEER [Suspect]
     Active Substance: BOSENTAN
     Dosage: 15.65 MG, BID
     Route: 048
  10. PENICILLIN-VK [Concomitant]
     Active Substance: PENICILLIN V POTASSIUM
     Dosage: 2.5 ML, BID
     Route: 048
  11. SPIRONOLACTONE. [Concomitant]
     Active Substance: SPIRONOLACTONE
     Dosage: 2 ML, BID
     Route: 048
  12. TRACLEER [Suspect]
     Active Substance: BOSENTAN
     Indication: PULMONARY HYPERTENSION
     Dosage: 15.65 MG BID
     Route: 048
     Dates: end: 20180917

REACTIONS (1)
  - Product dose omission [Recovered/Resolved]

NARRATIVE: CASE EVENT DATE: 20180917
